FAERS Safety Report 16343722 (Version 2)
Quarter: 2019Q2

REPORT INFORMATION
  Report Type: Spontaneous
  Country: US (occurrence: US)
  Receive Date: 20190522
  Receipt Date: 20190523
  Transmission Date: 20190711
  Serious: No
  Sender: FDA-Public Use
  Company Number: US-PFIZER INC-2019212006

PATIENT
  Age: 70 Year
  Sex: Male
  Weight: 175 kg

DRUGS (4)
  1. PANTOPRAZOLE [Suspect]
     Active Substance: PANTOPRAZOLE
     Indication: CHEST PAIN
  2. PANTOPRAZOLE TORRENT [Suspect]
     Active Substance: PANTOPRAZOLE SODIUM
     Indication: CHEST PAIN
  3. PANTOPRAZOLE TORRENT [Suspect]
     Active Substance: PANTOPRAZOLE SODIUM
     Indication: GASTROOESOPHAGEAL REFLUX DISEASE
     Dosage: 1 DF, 1X/DAY (1 TABLET BY MOUTH ONCE DAILY 30 MINUTES PRIOR TO BREAKFAST)
     Dates: start: 20190322, end: 201904
  4. PANTOPRAZOLE [Suspect]
     Active Substance: PANTOPRAZOLE
     Indication: GASTROOESOPHAGEAL REFLUX DISEASE
     Dosage: 1 DF, (1 TABLET BY MOUTH ONCE DAILY 30 MINUTES PRIOR TO BREAKFAST)
     Dates: start: 201904, end: 201904

REACTIONS (1)
  - Drug hypersensitivity [Not Recovered/Not Resolved]
